FAERS Safety Report 8949646 (Version 5)
Quarter: 2013Q3

REPORT INFORMATION
  Report Type: Spontaneous
  Country: CO (occurrence: CO)
  Receive Date: 20121206
  Receipt Date: 20130802
  Transmission Date: 20140515
  Serious: Yes (Hospitalization, Other)
  Sender: FDA-Public Use
  Company Number: CO-AMGEN-COLSP2012072584

PATIENT
  Age: 81 Year
  Sex: Female

DRUGS (13)
  1. ENBREL [Suspect]
     Indication: PSORIASIS
     Dosage: 50 MG, WEEKLY
     Route: 058
     Dates: end: 201304
  2. OXYGEN [Concomitant]
     Dosage: UNK
     Route: 065
     Dates: start: 201106
  3. LOSARTAN [Concomitant]
     Indication: HYPERTENSION
     Dosage: 50 MG, UNK
     Dates: start: 2011
  4. FUROSEMIDE [Concomitant]
     Dosage: 40 MG, UNK
     Dates: start: 2011
  5. AMLODIPINE [Concomitant]
     Dosage: 5 MG, UNK
     Dates: start: 2011
  6. ENALAPRIL [Concomitant]
     Dosage: 5 MG, 1X/DAY
     Route: 048
  7. SPIRONOLACTONE [Concomitant]
     Dosage: 50 MG, 1X/DAY
     Route: 048
  8. IPRATROPIUM BROMIDE [Concomitant]
     Dosage: 2 PUFFS, 3X/DAY
  9. CLARITHROMYCIN [Concomitant]
     Dosage: 500 MG, 2X/DAY
     Route: 048
  10. DOXYCYCLINE [Concomitant]
     Dosage: 100 MG, 2X/DAY
  11. PREDNISOLONE [Concomitant]
     Dosage: 50 MG, 1X/DAY
  12. OMEPRAZOLE [Concomitant]
     Dosage: 20 MG, 2X/DAY
  13. THYROXIN [Concomitant]
     Dosage: 50 UG, 1X/DAY

REACTIONS (9)
  - Cough [Not Recovered/Not Resolved]
  - Hypertension [Not Recovered/Not Resolved]
  - Productive cough [Not Recovered/Not Resolved]
  - Chest discomfort [Not Recovered/Not Resolved]
  - Lung disorder [Recovered/Resolved with Sequelae]
  - Asphyxia [Recovered/Resolved with Sequelae]
  - Lung infection [Not Recovered/Not Resolved]
  - Influenza [Recovering/Resolving]
  - Pneumonia [Recovering/Resolving]
